FAERS Safety Report 5966229-6 (Version None)
Quarter: 2008Q4

REPORT INFORMATION
  Report Type: 
  Country: None (occurrence: None)
  Receive Date: 20081125
  Receipt Date: 20081118
  Transmission Date: 20090506
  Serious: Yes (Hospitalization)
  Sender: FDA-Public Use
  Company Number: US-JNJFOC-20070306437

PATIENT
  Sex: Female
  Weight: 52 kg

DRUGS (2)
  1. ORTHO EVRA [Suspect]
     Indication: CONTRACEPTION
     Route: 062
  2. TETRACYCLINE [Concomitant]

REACTIONS (3)
  - PULMONARY EMBOLISM [None]
  - THROMBOPHLEBITIS SEPTIC [None]
  - THROMBOSIS [None]
